FAERS Safety Report 7155857-0 (Version None)
Quarter: 2010Q4

REPORT INFORMATION
  Report Type: 
  Country: None (occurrence: None)
  Receive Date: 20101214
  Receipt Date: 20101203
  Transmission Date: 20110411
  Serious: Yes (Life-Threatening, Hospitalization, Other)
  Sender: FDA-Public Use
  Company Number: FR-KINGPHARMUSA00001-K201001471

PATIENT
  Age: 76 Year
  Sex: Female

DRUGS (6)
  1. ALTACE [Suspect]
     Dosage: 5 MG, UNK
  2. HYDROCHLOROTHIAZIDE [Suspect]
     Dosage: 12.5 MG, UNK
  3. SPIRONOLACTONE [Suspect]
     Indication: OEDEMA
     Dosage: 25 MG, UNK
  4. CARVEDILOL [Concomitant]
     Dosage: 12.5 MG, UNK
  5. ATORVASTATIN [Concomitant]
     Dosage: 20 MG, UNK
  6. ACETYLSALICYLIC ACID [Concomitant]
     Dosage: 100 MG, UNK

REACTIONS (9)
  - ABDOMINAL PAIN [None]
  - BRADYCARDIA [None]
  - DIARRHOEA [None]
  - DIZZINESS [None]
  - HYPERKALAEMIA [None]
  - LOSS OF CONSCIOUSNESS [None]
  - NAUSEA [None]
  - SYNCOPE [None]
  - VOMITING [None]
